FAERS Safety Report 10145930 (Version 1)
Quarter: 2014Q2

REPORT INFORMATION
  Report Type: Spontaneous
  Country: US (occurrence: US)
  Receive Date: 20140501
  Receipt Date: 20140501
  Transmission Date: 20141212
  Serious: No
  Sender: FDA-Public Use
  Company Number: US-ABBVIE-13P-163-1152135-00

PATIENT
  Age: 47 Year
  Sex: Female
  Weight: 77.18 kg

DRUGS (19)
  1. CREON [Suspect]
     Indication: PANCREATITIS
     Dates: start: 20130712
  2. BUSPIRONE [Concomitant]
     Indication: ANXIETY
  3. PRIMIDONE [Concomitant]
     Indication: TREMOR
  4. CYMBALTA [Concomitant]
     Indication: DEPRESSION
  5. LOVAZA [Concomitant]
     Indication: BLOOD TRIGLYCERIDES
  6. BUPROPION [Concomitant]
     Indication: SUPPLEMENTATION THERAPY
  7. BUPROPION [Concomitant]
     Indication: DRUG THERAPY
  8. GABAPENTIN [Concomitant]
     Indication: NERVOUSNESS
  9. NEXIUM [Concomitant]
     Indication: GASTROOESOPHAGEAL REFLUX DISEASE
  10. VITAMIN B12 [Concomitant]
     Indication: VITAMIN B12 DEFICIENCY
  11. VITAMIN D3 [Concomitant]
     Indication: VITAMIN D DEFICIENCY
  12. LOSARTAN [Concomitant]
     Indication: HYPERTENSION
  13. ASPIRIN [Concomitant]
     Indication: ISCHAEMIC HEART DISEASE PROPHYLAXIS
  14. COREG [Concomitant]
     Indication: HYPERTENSION
  15. VENTOLIN [Concomitant]
     Indication: CHRONIC OBSTRUCTIVE PULMONARY DISEASE
     Route: 055
  16. LEVOTHYROXINE [Concomitant]
     Indication: HYPOTHYROIDISM
  17. CRESTOR [Concomitant]
     Indication: BLOOD CHOLESTEROL INCREASED
  18. SPIRIVA [Concomitant]
     Indication: CHRONIC OBSTRUCTIVE PULMONARY DISEASE
  19. ADVAIR [Concomitant]
     Indication: CHRONIC OBSTRUCTIVE PULMONARY DISEASE

REACTIONS (3)
  - Upper respiratory tract infection [Recovered/Resolved]
  - Musculoskeletal chest pain [Unknown]
  - Sinusitis [Recovered/Resolved]
